FAERS Safety Report 6908227-1 (Version None)
Quarter: 2010Q3

REPORT INFORMATION
  Report Type: 
  Country: None (occurrence: None)
  Receive Date: 20100708
  Receipt Date: 20090221
  Transmission Date: 20110219
  Serious: Yes (Other)
  Sender: FDA-Public Use
  Company Number: 2009158205

PATIENT
  Age: 54 Year
  Sex: Male

DRUGS (2)
  1. CHANTIX [Suspect]
     Indication: SMOKING CESSATION THERAPY
     Dosage: ORAL
     Route: 048
     Dates: start: 20070511
  2. SOLU-MEDROL (METHYLPREDNISOLONE SODIUM SUCCINATE) POWDER FOR SOLUTION [Suspect]

REACTIONS (1)
  - DIABETES MELLITUS [None]
